FAERS Safety Report 7983257-X (Version None)
Quarter: 2011Q4

REPORT INFORMATION
  Report Type: 
  Country: None (occurrence: None)
  Receive Date: 20111215
  Receipt Date: 20111204
  Transmission Date: 20120403
  Serious: Yes (Other)
  Sender: FDA-Public Use
  Company Number: CA-JNJFOC-20111204027

PATIENT
  Sex: Female
  Weight: 82 kg

DRUGS (6)
  1. COLACE [Concomitant]
  2. METHOTREXATE [Concomitant]
  3. ACETAMINOPHEN [Concomitant]
  4. REMICADE [Suspect]
     Indication: PRODUCT USED FOR UNKNOWN INDICATION
     Route: 042
     Dates: start: 20100204
  5. REMICADE [Suspect]
     Route: 042
     Dates: start: 20111128, end: 20111128
  6. BENTYLOL [Concomitant]

REACTIONS (2)
  - LUNG NEOPLASM [None]
  - ABDOMINAL PAIN [None]
